FAERS Safety Report 22854558 (Version 2)
Quarter: 2024Q3

REPORT INFORMATION
  Report Type: Spontaneous
  Country: IN (occurrence: IN)
  Receive Date: 20230823
  Receipt Date: 20240816
  Transmission Date: 20241017
  Serious: Yes (Other)
  Sender: PFIZER
  Company Number: IN-PFIZER INC-202300282262

PATIENT
  Age: 30 Year
  Sex: Male

DRUGS (5)
  1. CARBOPLATIN [Suspect]
     Active Substance: CARBOPLATIN
     Indication: Chemotherapy
     Dosage: D1.D8 AND D15
     Dates: start: 20230221
  2. CARBOPLATIN [Suspect]
     Active Substance: CARBOPLATIN
     Dosage: D1.D8 AND D15
     Dates: start: 20230228
  3. CARBOPLATIN [Suspect]
     Active Substance: CARBOPLATIN
     Dosage: C2D1
     Dates: start: 20230316
  4. CARBOPLATIN [Suspect]
     Active Substance: CARBOPLATIN
     Dosage: C6D15
     Dates: start: 20230703, end: 20230703
  5. PEMETREXED [Concomitant]
     Active Substance: PEMETREXED
     Indication: Chemotherapy
     Dosage: EVERY 21 DAYS
     Dates: start: 20230228, end: 20230703

REACTIONS (6)
  - Dyspnoea [Unknown]
  - Klebsiella infection [Unknown]
  - Pulmonary thrombosis [Unknown]
  - Chest X-ray abnormal [Unknown]
  - Bundle branch block left [Unknown]
  - Ejection fraction decreased [Unknown]

NARRATIVE: CASE EVENT DATE: 20230301
